FAERS Safety Report 18373741 (Version 1)
Quarter: 2020Q4

REPORT INFORMATION
  Report Type: Other
  Country: CN (occurrence: CN)
  Receive Date: 20201012
  Receipt Date: 20201012
  Transmission Date: 20210114
  Serious: Yes (Other)
  Sender: FDA-Public Use
  Company Number: CN-INVATECH-000024

PATIENT
  Age: 42 Month
  Sex: Female

DRUGS (8)
  1. CALCITRIOL. [Suspect]
     Active Substance: CALCITRIOL
     Indication: HYPOCALCAEMIC SEIZURE
     Dosage: 0.25 MICROGRAM/DAY (0.028 MICROGRAM/KG/DAY)
  2. CALCIUM [Suspect]
     Active Substance: CALCIUM
     Indication: HYPOCALCAEMIC SEIZURE
     Dosage: 500 MG/DAY DIVIDED THREE TIMES A DAY ORALLY
     Route: 048
  3. CALCITRIOL. [Suspect]
     Active Substance: CALCITRIOL
     Indication: HYPOCALCAEMIC SEIZURE
     Dosage: 1.0 UG/DAY (0.08 UG/KG/DAY)
  4. CALCIUM [Suspect]
     Active Substance: CALCIUM
     Indication: HYPOCALCAEMIC SEIZURE
     Dosage: 700 MG/DAY (75 MG/KG/ DAY) ORALLY, DIVIDED THREE TIMES PER DAY
     Route: 048
  5. CALCITRIOL. [Suspect]
     Active Substance: CALCITRIOL
     Indication: HYPOCALCAEMIC SEIZURE
     Dosage: 0.75 UG/DAY (0.079 UG/KG/DAY)
  6. CALCIUM [Suspect]
     Active Substance: CALCIUM
     Indication: HYPOCALCAEMIC SEIZURE
     Dosage: 600  MG/DAY (68  MG/KG/DAY) ORALLY, DIVIDED THREE TIMES PER DAY
     Route: 048
  7. CALCITRIOL. [Suspect]
     Active Substance: CALCITRIOL
     Indication: HYPOCALCAEMIC SEIZURE
     Dosage: 0.25 UG/DAY
  8. CALCIUM [Suspect]
     Active Substance: CALCIUM
     Indication: HYPOCALCAEMIC SEIZURE
     Dosage: 900 MG/DAY (78 MG/KG/DAY) DIVIDED THREE TIMES A DAY

REACTIONS (1)
  - Nephrocalcinosis [Unknown]
